FAERS Safety Report 4300358-8 (Version None)
Quarter: 2004Q1

REPORT INFORMATION
  Report Type: 
  Country: None (occurrence: None)
  Receive Date: 20040218
  Receipt Date: 20040205
  Transmission Date: 20041129
  Serious: Yes (Death, Other)
  Sender: FDA-Public Use
  Company Number: 2003040874

PATIENT
  Age: 89 Year
  Sex: Male

DRUGS (14)
  1. GEODON [Suspect]
     Indication: PSYCHOTIC DISORDER
     Dosage: 20 MG (DAILY), INTRAMUSCULAR
     Route: 030
     Dates: start: 20030323, end: 20030326
  2. PENTOBARBITAL CAP [Concomitant]
  3. PROPACET           (PARACETAMOL DEXTROPROPXYPHENE NAPSILATE) [Concomitant]
  4. ISOSORBIDE DINITRATE [Concomitant]
  5. METOPROLOL SUCCINATE [Concomitant]
  6. LOSARTAN (LOSARTAN) [Concomitant]
  7. HEPARIN-FRACTION, SODIUM SALT [Concomitant]
  8. FAMOTIDINE [Concomitant]
  9. ACETYLSALICYLIC ACID (ACETYLSALICYLIC) [Concomitant]
  10. MULTIVITAMIN [Concomitant]
  11. CALCIUM (CALCIUM) [Concomitant]
  12. ASCORBIC ACID [Concomitant]
  13. NITROGLYCERIN [Concomitant]
  14. CLINDAMYCIN     (CLINDAMYCIN) [Concomitant]

REACTIONS (7)
  - CARDIAC DEATH [None]
  - CARDIO-RESPIRATORY ARREST [None]
  - DEVICE FAILURE [None]
  - FEEDING DISORDER [None]
  - GASTRIC PERFORATION [None]
  - PERITONITIS [None]
  - TREATMENT NONCOMPLIANCE [None]
